FAERS Safety Report 9711489 (Version 2)
Quarter: 2013Q4

REPORT INFORMATION
  Report Type: Spontaneous
  Country: US (occurrence: US)
  Receive Date: 20131126
  Receipt Date: 20131126
  Transmission Date: 20140711
  Serious: No
  Sender: FDA-Public Use
  Company Number: US-BRISTOL-MYERS SQUIBB COMPANY-18761098

PATIENT
  Age: 56 Year
  Sex: Female

DRUGS (2)
  1. BYDUREON [Suspect]
     Dates: start: 2013
  2. ACTOPLUS MET [Concomitant]
     Dosage: THERAPY ON FEB13

REACTIONS (3)
  - Gastrointestinal disorder [Recovered/Resolved]
  - Nausea [Unknown]
  - Weight decreased [Unknown]
